FAERS Safety Report 20588801 (Version 1)
Quarter: 2022Q1

REPORT INFORMATION
  Report Type: Report from Study
  Country: DE (occurrence: DE)
  Receive Date: 20220314
  Receipt Date: 20220314
  Transmission Date: 20220423
  Serious: Yes (Hospitalization)
  Sender: FDA-Public Use
  Company Number: DE-CELGENE-DEU-20220303555

PATIENT
  Age: 52 Year
  Sex: Female
  Weight: 60 kg

DRUGS (11)
  1. ABRAXANE [Suspect]
     Active Substance: PACLITAXEL
     Indication: Ductal adenocarcinoma of pancreas
     Dosage: 215 MILLIGRAM
     Route: 041
     Dates: start: 20220125
  2. ABRAXANE [Suspect]
     Active Substance: PACLITAXEL
     Dosage: 160 MILLIGRAM
     Route: 041
     Dates: start: 20220301
  3. ABRAXANE [Suspect]
     Active Substance: PACLITAXEL
     Dosage: 125 MILLIGRAM/SQ. METER
     Route: 041
     Dates: start: 20220301
  4. ABRAXANE [Suspect]
     Active Substance: PACLITAXEL
     Dosage: 93.75 MILLIGRAM/SQ. METER
     Route: 041
     Dates: start: 20220201
  5. AZACITIDINE [Suspect]
     Active Substance: AZACITIDINE
     Indication: Ductal adenocarcinoma of pancreas
     Dosage: 516 MILLIGRAM
     Route: 058
     Dates: start: 20220117
  6. AZACITIDINE [Suspect]
     Active Substance: AZACITIDINE
     Dosage: 1248 MILLIGRAM
     Route: 058
     Dates: start: 20220225
  7. AZACITIDINE [Suspect]
     Active Substance: AZACITIDINE
     Dosage: 30 MILLIGRAM/SQ. METER
     Route: 058
     Dates: start: 20220225
  8. GEMCITABINE [Suspect]
     Active Substance: GEMCITABINE
     Indication: Ductal adenocarcinoma of pancreas
     Dosage: 1720 MILLIGRAM
     Route: 041
     Dates: start: 20220125
  9. GEMCITABINE [Suspect]
     Active Substance: GEMCITABINE
     Indication: Diffuse large B-cell lymphoma recurrent
     Dosage: 1283 MILLIGRAM
     Route: 041
     Dates: start: 20220301
  10. GEMCITABINE [Suspect]
     Active Substance: GEMCITABINE
     Indication: Diffuse large B-cell lymphoma refractory
     Dosage: 10 MILLIGRAM/SQ. METER
     Route: 041
     Dates: start: 20220301
  11. GEMCITABINE [Suspect]
     Active Substance: GEMCITABINE
     Dosage: 750 MILLIGRAM
     Route: 041
     Dates: start: 20220201

REACTIONS (1)
  - Gastric disorder [Not Recovered/Not Resolved]

NARRATIVE: CASE EVENT DATE: 20220310
